FAERS Safety Report 13058430 (Version 1)
Quarter: 2016Q4

REPORT INFORMATION
  Report Type: Spontaneous
  Country: US (occurrence: US)
  Receive Date: 20161223
  Receipt Date: 20161223
  Transmission Date: 20170207
  Serious: No
  Sender: FDA-Public Use
  Company Number: US-PFIZER INC-2016593472

PATIENT
  Age: 47 Year
  Sex: Female
  Weight: 58 kg

DRUGS (1)
  1. CHANTIX [Suspect]
     Active Substance: VARENICLINE TARTRATE
     Indication: SMOKING CESSATION THERAPY
     Dosage: 1 MG, 2X/DAY, IN THE MORNING AND IN THE EVENING
     Dates: start: 20161119

REACTIONS (4)
  - Nasopharyngitis [Unknown]
  - Parosmia [Unknown]
  - Dysgeusia [Unknown]
  - Sinus disorder [Unknown]

NARRATIVE: CASE EVENT DATE: 2016
